FAERS Safety Report 24928466 (Version 1)
Quarter: 2025Q1

REPORT INFORMATION
  Report Type: Spontaneous
  Country: US (occurrence: None)
  Receive Date: 20250204
  Receipt Date: 20250204
  Transmission Date: 20250409
  Serious: Yes (Death)
  Sender: FDA-CTU
  Company Number: None

PATIENT
  Age: 63 Year
  Sex: Male

DRUGS (5)
  1. VELTASSA [Suspect]
     Active Substance: PATIROMER
     Indication: Hyperkalaemia
     Dosage: 8.4 G GRAMS DAILY ORAL
     Route: 048
     Dates: start: 20250107
  2. ROSUVASTATIN [Concomitant]
     Active Substance: ROSUVASTATIN
  3. VALSARTAN [Concomitant]
     Active Substance: VALSARTAN
  4. CARVEDILOL [Concomitant]
     Active Substance: CARVEDILOL
  5. FARXIGA [Concomitant]
     Active Substance: DAPAGLIFLOZIN PROPANEDIOL

REACTIONS (1)
  - Death [None]

NARRATIVE: CASE EVENT DATE: 20250204
